FAERS Safety Report 9853635 (Version 1)
Quarter: 2014Q1

REPORT INFORMATION
  Report Type: Spontaneous
  Country: AU (occurrence: AU)
  Receive Date: 20140129
  Receipt Date: 20140129
  Transmission Date: 20141002
  Serious: Yes (Other)
  Sender: FDA-Public Use
  Company Number: AU-ASTRAZENECA-2013SE83672

PATIENT
  Age: 0 Week
  Sex: Male

DRUGS (4)
  1. QUETIAPINE [Suspect]
     Indication: BIPOLAR DISORDER
     Route: 064
  2. LITHIUM [Suspect]
     Indication: BIPOLAR DISORDER
     Route: 064
  3. PHENELZINE [Suspect]
     Indication: BIPOLAR DISORDER
     Route: 064
  4. VITAMIN B12 [Concomitant]
     Indication: VITAMIN B12 DEFICIENCY
     Route: 064

REACTIONS (4)
  - Foetal macrosomia [Unknown]
  - Tachycardia foetal [Unknown]
  - Muscle twitching [Recovered/Resolved]
  - Drug withdrawal syndrome neonatal [Unknown]
